FAERS Safety Report 24648275 (Version 1)
Quarter: 2024Q4

REPORT INFORMATION
  Report Type: Spontaneous
  Country: US (occurrence: US)
  Receive Date: 20241121
  Receipt Date: 20241121
  Transmission Date: 20250115
  Serious: Yes (Other)
  Sender: SANOFI AVENTIS
  Company Number: US-SA-2024SA338117

PATIENT
  Age: 68 Year
  Sex: Female

DRUGS (12)
  1. DUPIXENT [Suspect]
     Active Substance: DUPILUMAB
     Indication: Bronchiectasis
     Dosage: 300 MG, QOW
     Route: 058
  2. DUPIXENT [Suspect]
     Active Substance: DUPILUMAB
     Indication: Condition aggravated
  3. CARVEDILOL [Concomitant]
     Active Substance: CARVEDILOL
     Dosage: UNK
  4. HYDRALAZINE [Concomitant]
     Active Substance: HYDRALAZINE HYDROCHLORIDE
     Dosage: UNK
  5. HYDROXYCHLOROQUINE [Concomitant]
     Active Substance: HYDROXYCHLOROQUINE
     Dosage: UNK
  6. IRBESARTAN [Concomitant]
     Active Substance: IRBESARTAN
     Dosage: UNK
  7. LEVOTHYROXINE [Concomitant]
     Active Substance: LEVOTHYROXINE
     Dosage: UNK
  8. PROBIOTICS NOS [Concomitant]
     Active Substance: PROBIOTICS NOS
     Dosage: UNK
  9. PROBIOTICS NOS [Concomitant]
     Active Substance: PROBIOTICS NOS
     Dosage: UNK
  10. TRELEGY ELLIPTA [Concomitant]
     Active Substance: FLUTICASONE FUROATE\UMECLIDINIUM BROMIDE\VILANTEROL TRIFENATATE
     Dosage: UNK
  11. TYLENOL [Concomitant]
     Active Substance: ACETAMINOPHEN
     Dosage: UNK
  12. VENTOLIN HFA [Concomitant]
     Active Substance: ALBUTEROL SULFATE
     Dosage: UNK

REACTIONS (7)
  - Pneumonia [Unknown]
  - Rheumatoid arthritis [Unknown]
  - Arthralgia [Unknown]
  - Chronic obstructive pulmonary disease [Unknown]
  - Respiratory tract congestion [Unknown]
  - Cough [Unknown]
  - Product use in unapproved indication [Unknown]

NARRATIVE: CASE EVENT DATE: 20240101
